FAERS Safety Report 16479403 (Version 1)
Quarter: 2019Q2

REPORT INFORMATION
  Report Type: Spontaneous
  Country: US (occurrence: US)
  Receive Date: 20190626
  Receipt Date: 20190626
  Transmission Date: 20190711
  Serious: No
  Sender: FDA-Public Use
  Company Number: US-HIKMA PHARMACEUTICALS USA INC.-US-H14001-19-02540

PATIENT
  Age: 56 Year
  Sex: Male

DRUGS (1)
  1. ZALEPLON. [Suspect]
     Active Substance: ZALEPLON
     Indication: SLEEP DISORDER
     Route: 048
     Dates: start: 201904

REACTIONS (1)
  - Contusion [Unknown]

NARRATIVE: CASE EVENT DATE: 20190411
